FAERS Safety Report 8168586-1 (Version None)
Quarter: 2012Q1

REPORT INFORMATION
  Report Type: 
  Country: None (occurrence: None)
  Receive Date: 20120227
  Receipt Date: 20120222
  Transmission Date: 20120608
  Serious: Yes (Hospitalization, Other)
  Sender: FDA-Public Use
  Company Number: CA-ROCHE-1039486

PATIENT
  Sex: Male
  Weight: 85.352 kg

DRUGS (4)
  1. AVASTIN [Suspect]
     Indication: GLIOBLASTOMA
     Route: 042
     Dates: start: 20111230, end: 20120210
  2. LORAZEPAM [Concomitant]
  3. DECADRON [Concomitant]
  4. ZANTAC [Concomitant]

REACTIONS (2)
  - DEPRESSION [None]
  - PULMONARY EMBOLISM [None]
